FAERS Safety Report 15209532 (Version 3)
Quarter: 2018Q3

REPORT INFORMATION
  Report Type: Spontaneous
  Country: UA (occurrence: UA)
  Receive Date: 20180727
  Receipt Date: 20180815
  Transmission Date: 20181010
  Serious: Yes (Hospitalization, Other)
  Sender: FDA-Public Use
  Company Number: UA-ASTRAZENECA-2018SE94902

PATIENT
  Age: 25328 Day
  Sex: Male

DRUGS (7)
  1. BRILINTA [Suspect]
     Active Substance: TICAGRELOR
     Indication: ACUTE CORONARY SYNDROME
     Dosage: A LOADING DOSE OF BRILINTA (TWO PILLS) IN HOSPITAL, AFTER THAT THE PATIENT WAS ON BRILINTA, 90 MG...
     Route: 048
     Dates: start: 20180620, end: 20180720
  2. METFORMIN [Concomitant]
     Active Substance: METFORMIN HYDROCHLORIDE
  3. BRILINTA [Suspect]
     Active Substance: TICAGRELOR
     Indication: ACUTE MYOCARDIAL INFARCTION
     Dosage: A LOADING DOSE OF BRILINTA (TWO PILLS) IN HOSPITAL, AFTER THAT THE PATIENT WAS ON BRILINTA, 90 MG...
     Route: 048
     Dates: start: 20180620, end: 20180720
  4. CRESTOR [Concomitant]
     Active Substance: ROSUVASTATIN CALCIUM
     Dosage: 20 MG
  5. BETALOC ZOK [Concomitant]
     Active Substance: METOPROLOL SUCCINATE
     Dosage: 100
  6. RAMIPRIL. [Concomitant]
     Active Substance: RAMIPRIL
  7. PLAVIX [Concomitant]
     Active Substance: CLOPIDOGREL BISULFATE

REACTIONS (3)
  - Blood pressure increased [Recovered/Resolved]
  - Dyspnoea [Recovered/Resolved]
  - Vascular stent thrombosis [Recovered/Resolved]

NARRATIVE: CASE EVENT DATE: 20180720
